FAERS Safety Report 20591378 (Version 3)
Quarter: 2022Q3

REPORT INFORMATION
  Report Type: Spontaneous
  Country: JP (occurrence: JP)
  Receive Date: 20220314
  Receipt Date: 20220906
  Transmission Date: 20221027
  Serious: Yes (Death, Other)
  Sender: FDA-Public Use
  Company Number: JP-OTSUKA-2022_011376

PATIENT
  Age: 70 Year
  Sex: Female

DRUGS (9)
  1. ABILIFY [Suspect]
     Active Substance: ARIPIPRAZOLE
     Indication: Manic symptom
     Dosage: 400 MG/SHOT
     Route: 030
     Dates: start: 20201118, end: 20211124
  2. ABILIFY [Suspect]
     Active Substance: ARIPIPRAZOLE
     Indication: Bipolar disorder
  3. VALPROATE SODIUM [Suspect]
     Active Substance: VALPROATE SODIUM
     Indication: Product used for unknown indication
     Dosage: 400 MG/DAY
     Route: 048
     Dates: start: 20210929, end: 20211124
  4. VALPROATE SODIUM [Suspect]
     Active Substance: VALPROATE SODIUM
     Dosage: 400 MG/DAY
     Route: 048
     Dates: start: 201501
  5. VALPROATE SODIUM [Suspect]
     Active Substance: VALPROATE SODIUM
     Dosage: 800 MG/DAY
     Route: 048
     Dates: end: 20210831
  6. VALPROATE SODIUM [Suspect]
     Active Substance: VALPROATE SODIUM
     Dosage: 600 MG/DAY
     Route: 048
     Dates: start: 20210901, end: 20210928
  7. LITHIUM CARBONATE [Suspect]
     Active Substance: LITHIUM CARBONATE
     Indication: Product used for unknown indication
     Dosage: 200 MG/DAY
     Route: 048
     Dates: start: 201501, end: 20211124
  8. OLANZAPINE [Suspect]
     Active Substance: OLANZAPINE
     Indication: Product used for unknown indication
     Dosage: 10 MG/DAY
     Route: 048
     Dates: start: 201501, end: 20211124
  9. LEVOTHYROXINE SODIUM [Suspect]
     Active Substance: LEVOTHYROXINE SODIUM
     Indication: Product used for unknown indication
     Dosage: 25 MCG/DAY
     Route: 048
     Dates: start: 201501, end: 20211124

REACTIONS (1)
  - Death [Fatal]

NARRATIVE: CASE EVENT DATE: 20211220
